FAERS Safety Report 6691056-4 (Version None)
Quarter: 2010Q2

REPORT INFORMATION
  Report Type: 
  Country: None (occurrence: None)
  Receive Date: 20100422
  Receipt Date: 20100408
  Transmission Date: 20101027
  Serious: Yes (Other)
  Sender: FDA-Public Use
  Company Number: GB-RANBAXY-2010RR-33180

PATIENT
  Age: 23 Year
  Sex: Female
  Weight: 120 kg

DRUGS (4)
  1. CEPHALEXIN [Suspect]
     Indication: URINARY TRACT INFECTION
     Dosage: 500 MG, UNK
     Route: 048
     Dates: start: 20100315, end: 20100315
  2. AIROMIR [Concomitant]
     Dosage: UNK
     Dates: start: 20030904
  3. HYOSCINE [Concomitant]
     Dosage: 10 MG, QD
     Route: 048
     Dates: start: 20080901
  4. QVAR 40 [Concomitant]
     Dosage: UNK
     Dates: start: 20100208

REACTIONS (4)
  - CHEST PAIN [None]
  - DYSPNOEA [None]
  - PALPITATIONS [None]
  - URTICARIA [None]
